FAERS Safety Report 14485818 (Version 1)
Quarter: 2018Q1

REPORT INFORMATION
  Report Type: Spontaneous
  Country: US (occurrence: US)
  Receive Date: 20180203
  Receipt Date: 20180203
  Transmission Date: 20180509
  Serious: No
  Sender: FDA-Public Use
  Company Number: None

PATIENT
  Sex: Male

DRUGS (2)
  1. ULORIC [Suspect]
     Active Substance: FEBUXOSTAT
     Indication: PRODUCT USED FOR UNKNOWN INDICATION
     Route: 048
     Dates: start: 201506
  2. ULORIC [Suspect]
     Active Substance: FEBUXOSTAT
     Indication: CRYSTAL ARTHROPATHY
     Route: 048
     Dates: start: 201506

REACTIONS (1)
  - Myocardial infarction [None]
